FAERS Safety Report 4316277-7 (Version None)
Quarter: 2004Q1

REPORT INFORMATION
  Report Type: 
  Country: None (occurrence: None)
  Receive Date: 20040310
  Receipt Date: 20040109
  Transmission Date: 20041129
  Serious: Yes (Other)
  Sender: FDA-Public Use
  Company Number: HQWYE246912JAN04

PATIENT
  Age: 58 Year
  Sex: Female
  Weight: 79.45 kg

DRUGS (3)
  1. PROTONIX [Suspect]
     Indication: FLATULENCE
     Dosage: 40 MG 1 X PER 1 DAY ORAL
     Route: 048
     Dates: start: 20031201, end: 20040108
  2. ZOCOR [Concomitant]
  3. ATACAND [Concomitant]

REACTIONS (5)
  - COLD SWEAT [None]
  - FEELING JITTERY [None]
  - NAUSEA [None]
  - PRURITUS [None]
  - TREMOR [None]
